FAERS Safety Report 12856746 (Version 1)
Quarter: 2016Q4

REPORT INFORMATION
  Report Type: Spontaneous
  Country: US (occurrence: US)
  Receive Date: 20161017
  Receipt Date: 20161017
  Transmission Date: 20170207
  Serious: Yes (Disabling)
  Sender: FDA-Public Use
  Company Number: None

PATIENT
  Age: 62 Year
  Sex: Male
  Weight: 85.5 kg

DRUGS (7)
  1. SPANSULES [Concomitant]
  2. OMEPRAZOLE. [Concomitant]
     Active Substance: OMEPRAZOLE
  3. SAW PALMETTO [Concomitant]
     Active Substance: SAW PALMETTO
  4. TAMSULOSIN HCL [Suspect]
     Active Substance: TAMSULOSIN
     Indication: BENIGN PROSTATIC HYPERPLASIA
     Dosage: ?          QUANTITY:1 CAPSULE(S);?
     Route: 048
  5. VITAMIN D [Concomitant]
     Active Substance: CHOLECALCIFEROL
  6. DEXAMPHETAMINE [Concomitant]
     Active Substance: AMPHETAMINE
  7. LISINOPRL [Concomitant]
     Active Substance: LISINOPRIL

REACTIONS (3)
  - Dyspnoea [None]
  - Ejaculation failure [None]
  - Libido decreased [None]

NARRATIVE: CASE EVENT DATE: 20150605
